FAERS Safety Report 16104794 (Version 1)
Quarter: 2019Q1

REPORT INFORMATION
  Report Type: Spontaneous
  Country: JP (occurrence: JP)
  Receive Date: 20190322
  Receipt Date: 20190322
  Transmission Date: 20190418
  Serious: Yes (Hospitalization, Other)
  Sender: FDA-Public Use
  Company Number: JP-ELI_LILLY_AND_COMPANY-JP201903007856

PATIENT
  Age: 75 Year

DRUGS (2)
  1. OLUMIANT [Suspect]
     Active Substance: BARICITINIB
     Indication: RHEUMATIC DISORDER
     Dosage: 2 MG, DAILY
     Route: 048
     Dates: end: 20190129
  2. OLUMIANT [Suspect]
     Active Substance: BARICITINIB
     Dosage: 2 MG, DAILY
     Route: 048
     Dates: start: 20190223, end: 20190228

REACTIONS (2)
  - Embolism venous [Unknown]
  - Femur fracture [Unknown]

NARRATIVE: CASE EVENT DATE: 20190129
